FAERS Safety Report 17913980 (Version 1)
Quarter: 2020Q2

REPORT INFORMATION
  Report Type: Spontaneous
  Country: US (occurrence: US)
  Receive Date: 20200618
  Receipt Date: 20200618
  Transmission Date: 20200714
  Serious: No
  Sender: FDA-Public Use
  Company Number: US-ROCHE-2557805

PATIENT

DRUGS (1)
  1. XOFLUZA [Suspect]
     Active Substance: BALOXAVIR MARBOXIL
     Indication: PRODUCT USED FOR UNKNOWN INDICATION
     Dosage: TWO 20 MG TABLETS AS REQUIRED ;ONGOING: NO
     Route: 048
     Dates: start: 20200123

REACTIONS (3)
  - Product dose omission [Unknown]
  - Product packaging quantity issue [Unknown]
  - No adverse event [Unknown]
